FAERS Safety Report 6743331-2 (Version None)
Quarter: 2010Q2

REPORT INFORMATION
  Report Type: 
  Country: None (occurrence: None)
  Receive Date: 20100527
  Receipt Date: 20100512
  Transmission Date: 20101027
  Serious: Yes (Hospitalization, Other)
  Sender: FDA-Public Use
  Company Number: US-ELI_LILLY_AND_COMPANY-US201002001742

PATIENT
  Sex: Female

DRUGS (17)
  1. FORTEO [Suspect]
     Indication: OSTEOPOROSIS
     Dosage: 20 UG, DAILY (1/D)
     Dates: start: 20091002
  2. FORTEO [Suspect]
     Dosage: 20 UG, DAILY (1/D)
  3. PREDNISONE TAB [Concomitant]
     Dosage: UNK, UNK
     Dates: start: 20080501, end: 20080801
  4. PLAQUENIL [Concomitant]
     Dosage: 200 MG, 2/D
  5. LEXAPRO [Concomitant]
     Indication: DEPRESSION
     Dosage: 5 MG, DAILY (1/D)
  6. VITAMIN B-12 [Concomitant]
     Dosage: 2000 UG, UNK
  7. CENTRUM SILVER [Concomitant]
  8. KLONOPIN [Concomitant]
     Dosage: 1 MG, UNK
  9. RESTORIL [Concomitant]
     Indication: SLEEP DISORDER
     Dosage: 7.5 MG, UNK
  10. ROZEREM [Concomitant]
     Indication: SLEEP DISORDER
     Dosage: 8 MG, UNK
  11. ENTOCORT EC [Concomitant]
     Dosage: 9 MG, DAILY (1/D)
  12. ENTOCORT EC [Concomitant]
     Dosage: 6 MG, DAILY (1/D)
  13. ENTOCORT EC [Concomitant]
     Dosage: 3 MG, DAILY (1/D)
  14. HYDROXYCHLOROQUINE SULFATE [Concomitant]
  15. CLONAZEPAM [Concomitant]
     Indication: INSOMNIA
  16. TOPROL-XL [Concomitant]
     Indication: BLOOD PRESSURE
     Dosage: 12.5 MG, 2/D
  17. VITAMIN C [Concomitant]

REACTIONS (27)
  - ABNORMAL FAECES [None]
  - ANXIETY [None]
  - BLOOD POTASSIUM DECREASED [None]
  - COLITIS [None]
  - CONTUSION [None]
  - DEEP VEIN THROMBOSIS [None]
  - DEPRESSION [None]
  - DIARRHOEA [None]
  - DIZZINESS [None]
  - ERYTHEMA [None]
  - FALL [None]
  - FOOT FRACTURE [None]
  - GOITRE [None]
  - HEADACHE [None]
  - IRRITABLE BOWEL SYNDROME [None]
  - LARYNGITIS [None]
  - LIMB INJURY [None]
  - MALAISE [None]
  - MULTIPLE ALLERGIES [None]
  - OBSTRUCTIVE AIRWAYS DISORDER [None]
  - OEDEMA PERIPHERAL [None]
  - OROPHARYNGEAL PAIN [None]
  - THYROID MASS [None]
  - TINNITUS [None]
  - UPPER RESPIRATORY TRACT CONGESTION [None]
  - VISUAL IMPAIRMENT [None]
  - WEIGHT DECREASED [None]
